FAERS Safety Report 16001904 (Version 2)
Quarter: 2019Q1

REPORT INFORMATION
  Report Type: Spontaneous
  Country: US (occurrence: US)
  Receive Date: 20190225
  Receipt Date: 20190311
  Transmission Date: 20190418
  Serious: Yes (Hospitalization, Other)
  Sender: FDA-Public Use
  Company Number: US-PTC THERAPEUTICS, INC.-US-2019PTC000275

PATIENT

DRUGS (1)
  1. EMFLAZA [Suspect]
     Active Substance: DEFLAZACORT
     Indication: DUCHENNE MUSCULAR DYSTROPHY
     Dosage: 42 MG, QD
     Route: 048
     Dates: start: 20171123

REACTIONS (6)
  - Haemoptysis [Unknown]
  - Hernia [Unknown]
  - Large intestine perforation [Unknown]
  - Peritoneocutaneous fistula [Unknown]
  - Back pain [Unknown]
  - Oesophageal fistula [Unknown]

NARRATIVE: CASE EVENT DATE: 2018
